FAERS Safety Report 23799077 (Version 2)
Quarter: 2024Q3

REPORT INFORMATION
  Report Type: Report from Study
  Country: IL (occurrence: IL)
  Receive Date: 20240430
  Receipt Date: 20240930
  Transmission Date: 20241017
  Serious: Yes (Hospitalization, Other)
  Sender: ABBVIE
  Company Number: IL-ABBVIE-5692320

PATIENT
  Age: 77 Year
  Sex: Female

DRUGS (3)
  1. CARBIDOPA\LEVODOPA [Suspect]
     Active Substance: CARBIDOPA\LEVODOPA
     Indication: Parkinson^s disease
     Dosage: CONTINUOUS DOSAGE 3.9ML/H, EXTRA DOSAGE 1.3ML
     Route: 050
  2. CARBIDOPA\LEVODOPA [Suspect]
     Active Substance: CARBIDOPA\LEVODOPA
     Dosage: CONTINUOUS DOSAGE (ML/H)  4.0 ,EXTRA DOSAGE (ML)  1.30
     Route: 050
  3. CARBIDOPA\LEVODOPA [Suspect]
     Active Substance: CARBIDOPA\LEVODOPA
     Route: 050
     Dates: start: 20210803

REACTIONS (14)
  - Asthenia [Unknown]
  - Hypotension [Unknown]
  - Somnolence [Unknown]
  - Dysstasia [Not Recovered/Not Resolved]
  - Gait inability [Not Recovered/Not Resolved]
  - Fluid intake reduced [Unknown]
  - Decreased appetite [Unknown]
  - Visual impairment [Unknown]
  - Weight decreased [Unknown]
  - Hypernatraemia [Unknown]
  - Cognitive disorder [Unknown]
  - Constipation [Unknown]
  - Depressed mood [Unknown]
  - General physical health deterioration [Not Recovered/Not Resolved]

NARRATIVE: CASE EVENT DATE: 20240301
